FAERS Safety Report 10177363 (Version 1)
Quarter: 2014Q2

REPORT INFORMATION
  Report Type: Spontaneous
  Country: US (occurrence: None)
  Receive Date: 20140416
  Receipt Date: 20140416
  Transmission Date: 20141212
  Serious: Yes (Other)
  Sender: FDA-Public Use
  Company Number: 163-POMAL-14010853

PATIENT
  Age: 47 Year
  Sex: Female
  Weight: 84 kg

DRUGS (8)
  1. POMALYST [Suspect]
     Indication: PLASMA CELL MYELOMA RECURRENT
     Route: 048
     Dates: start: 201312
  2. ACYCLOVIR (ACICLOVIR) (ACICLOVIR) [Concomitant]
  3. ALLOPURINOL (ALLOPURINOL) [Concomitant]
  4. AUGMENTIN [Concomitant]
  5. CEFEPIME (CEFEPIME) [Concomitant]
  6. DEXAMETHASONE (DEXAMETHASONE) [Concomitant]
  7. FUROSEMIDE (FUROSEMIDE) [Concomitant]
  8. PREGABALIN (PREGABALIN) [Concomitant]

REACTIONS (1)
  - Dyspnoea [None]
